FAERS Safety Report 7627540-6 (Version None)
Quarter: 2011Q3

REPORT INFORMATION
  Report Type: 
  Country: None (occurrence: None)
  Receive Date: 20110713
  Receipt Date: 20110629
  Transmission Date: 20111222
  Serious: Yes (Other)
  Sender: FDA-Public Use
  Company Number: 1000022003

PATIENT
  Age: 30 Year
  Sex: Male

DRUGS (1)
  1. CITALOPRAM HYDROBROMIDE [Suspect]

REACTIONS (5)
  - SPERMATOZOA PROGRESSIVE MOTILITY ABNORMAL [None]
  - SPERM CONCENTRATION ABNORMAL [None]
  - MISCARRIAGE OF PARTNER [None]
  - SPERMATOZOA MORPHOLOGY ABNORMAL [None]
  - MATERNAL EXPOSURE DURING PREGNANCY [None]
